FAERS Safety Report 4751957-0 (Version None)
Quarter: 2005Q3

REPORT INFORMATION
  Report Type: 
  Country: None (occurrence: None)
  Receive Date: 20050822
  Receipt Date: 20050701
  Transmission Date: 20060218
  Serious: No
  Sender: FDA-Public Use
  Company Number: PHEH2005US07402

PATIENT
  Age: 46 Year
  Sex: Female

DRUGS (3)
  1. ZELNORM [Suspect]
     Indication: IRRITABLE BOWEL SYNDROME
     Dosage: ORAL
     Route: 048
     Dates: start: 20030101
  2. PANTOPRAZOLE SODIUM [Concomitant]
  3. ALLEGRA [Concomitant]

REACTIONS (1)
  - LIPOMA [None]
